FAERS Safety Report 10925327 (Version 1)
Quarter: 2015Q1

REPORT INFORMATION
  Report Type: Spontaneous
  Country: US (occurrence: None)
  Receive Date: 20150316
  Receipt Date: 20150316
  Transmission Date: 20150721
  Serious: Yes (Other)
  Sender: FDA-Public Use
  Company Number: None

PATIENT
  Age: 59 Year
  Sex: Female
  Weight: 51.71 kg

DRUGS (2)
  1. XOLAIR [Suspect]
     Active Substance: OMALIZUMAB
     Indication: CHRONIC SPONTANEOUS URTICARIA
     Route: 058
     Dates: start: 20140505, end: 20150123
  2. XOLAIR IS RECONSTITUTED WITH STERILE WATER (HOSPIRA INC) EXP: 5/1/2017. LOT # 39-389-DK. NDC: 0409-4887-10 [Concomitant]

REACTIONS (3)
  - Increased appetite [None]
  - Hunger [None]
  - Weight increased [None]

NARRATIVE: CASE EVENT DATE: 20140727
